FAERS Safety Report 25867439 (Version 1)
Quarter: 2025Q4

REPORT INFORMATION
  Report Type: Spontaneous
  Country: EU (occurrence: EU)
  Receive Date: 20251001
  Receipt Date: 20251001
  Transmission Date: 20260118
  Serious: Yes (Other)
  Sender: SANDOZ
  Company Number: EU-ROCHE-3218422

PATIENT
  Sex: Female

DRUGS (12)
  1. BENDAMUSTINE [Suspect]
     Active Substance: BENDAMUSTINE
     Indication: Diffuse large B-cell lymphoma
     Dosage: UNK (THIRD LINE WITH RITUIMAB AND POLATUZUMAB)
     Route: 065
     Dates: start: 20220715, end: 20220717
  2. CYCLOPHOSPHAMIDE\DOXORUBICIN\PREDNISONE\VINCRISTINE [Suspect]
     Active Substance: CYCLOPHOSPHAMIDE\DOXORUBICIN\PREDNISONE\VINCRISTINE
     Indication: Diffuse large B-cell lymphoma
     Dosage: UNK (FIRST LINE WITH RITUXIMAB)
     Route: 065
     Dates: start: 20210208, end: 20210705
  3. CYCLOPHOSPHAMIDE [Suspect]
     Active Substance: CYCLOPHOSPHAMIDE
     Indication: Diffuse large B-cell lymphoma
     Dosage: FIRST LINE WITH RITUXIMAB
     Route: 042
     Dates: start: 20210208, end: 20210705
  4. DOXORUBICIN [Suspect]
     Active Substance: DOXORUBICIN
     Indication: Diffuse large B-cell lymphoma
     Dosage: FIRST LINE WITH RITUXIMAB
     Route: 042
     Dates: start: 20210208, end: 20210705
  5. GEMCITABINE HYDROCHLORIDE\OXALIPLATIN [Suspect]
     Active Substance: GEMCITABINE HYDROCHLORIDE\OXALIPLATIN
     Indication: Diffuse large B-cell lymphoma
     Dosage: UNK (SECOND LINE WITH RITUXIMAB AND TAFASITAMAB)
     Route: 065
     Dates: start: 20220118, end: 20220513
  6. TAFASITAMAB [Suspect]
     Active Substance: TAFASITAMAB
     Indication: Diffuse large B-cell lymphoma
     Dosage: SECOND LINE WITH RITUXIMAB AND GEMOX
     Route: 065
     Dates: start: 20220118, end: 20220513
  7. PREDNISONE [Suspect]
     Active Substance: PREDNISONE
     Indication: Diffuse large B-cell lymphoma
     Dosage: FIRST LINE WITH RITUXIMAB
     Route: 065
     Dates: start: 20210208, end: 20210705
  8. POLIVY [Suspect]
     Active Substance: POLATUZUMAB VEDOTIN-PIIQ
     Indication: Diffuse large B-cell lymphoma
     Dosage: THIRD LINE WITH RITUXIMAB AND  BENDAMUSTINE
     Route: 065
     Dates: start: 20220715, end: 20220717
  9. RITUXIMAB [Suspect]
     Active Substance: RITUXIMAB
     Indication: Diffuse large B-cell lymphoma
     Dosage: UNK (FIRST LINE WITH CHOP)
     Route: 065
     Dates: start: 20210208, end: 20210705
  10. RITUXIMAB [Suspect]
     Active Substance: RITUXIMAB
     Dosage: UNK (SECOND LINE WITH GEMOX AND TAFASITAMAB)
     Route: 065
     Dates: start: 20220118, end: 20220513
  11. RITUXIMAB [Suspect]
     Active Substance: RITUXIMAB
     Dosage: UNK (THIRD LINE WITH POLATUZUMAB AND BENDAMUSTINE)
     Route: 065
     Dates: start: 20220715, end: 20220717
  12. VINCRISTINE [Suspect]
     Active Substance: VINCRISTINE
     Indication: Diffuse large B-cell lymphoma
     Dosage: FIRST LINE WITH RITUXIMAB
     Route: 042
     Dates: start: 20210208, end: 20210705

REACTIONS (1)
  - Disease progression [Not Recovered/Not Resolved]
